FAERS Safety Report 9011446 (Version 1)
Quarter: 2013Q1

REPORT INFORMATION
  Report Type: Spontaneous
  Country: US (occurrence: US)
  Receive Date: 20130108
  Receipt Date: 20130108
  Transmission Date: 20140127
  Serious: No
  Sender: FDA-Public Use
  Company Number: US-TEVA-379181USA

PATIENT
  Age: 28 Year
  Sex: Female
  Weight: 80.81 kg

DRUGS (4)
  1. PLAN B ONE-STEP [Suspect]
     Indication: POST COITAL CONTRACEPTION
     Dosage: 1.5 MILLIGRAM DAILY;
     Route: 048
     Dates: start: 20121229, end: 20121229
  2. ONE-A-DAY WOMEN^S [Concomitant]
     Indication: VITAMIN SUPPLEMENTATION
  3. BIOTIN [Concomitant]
     Indication: MEDICAL DIET
  4. CRANBERRY PILL [Concomitant]
     Indication: MEDICAL DIET

REACTIONS (1)
  - Menstruation irregular [Not Recovered/Not Resolved]
